FAERS Safety Report 9557633 (Version 1)
Quarter: 2013Q3

REPORT INFORMATION
  Report Type: Spontaneous
  Country: US (occurrence: None)
  Receive Date: 20130724
  Receipt Date: 20130724
  Transmission Date: 20140515
  Serious: Yes (Other)
  Sender: FDA-Public Use
  Company Number: PHEH2013US006571

PATIENT
  Age: 49 Year
  Sex: Female
  Weight: 77.1 kg

DRUGS (5)
  1. GILENYA (FINGOLIMOD) CAPSULE [Suspect]
     Route: 048
  2. PAXIL (PAROXETINE HYDROCHLORIDE) [Concomitant]
  3. ACCUPRIL (QUINAPRIL HYDROCHLORIDE) [Concomitant]
  4. WELLBUTRIN (BUPROPION HYDROCHLORIDE) [Concomitant]
  5. TRIAMTERENE/HCTZ (HYDROCHLOROTHIAZIDE, TRIAMTERENE) [Concomitant]

REACTIONS (3)
  - Chromaturia [None]
  - Muscle spasms [None]
  - Cough [None]
